FAERS Safety Report 7130623-0 (Version None)
Quarter: 2010Q4

REPORT INFORMATION
  Report Type: 
  Country: None (occurrence: None)
  Receive Date: 20101201
  Receipt Date: 20101119
  Transmission Date: 20110411
  Serious: Yes (Other)
  Sender: FDA-Public Use
  Company Number: US-GENZYME-FLUD-1000447

PATIENT
  Age: 16 Year

DRUGS (14)
  1. FLUDARA [Suspect]
     Indication: IMMUNE SYSTEM DISORDER
     Dosage: 30 MG/M2, QDX3
     Route: 065
  2. FLUDARA [Suspect]
     Indication: THERAPEUTIC PROCEDURE
  3. FLUDARA [Suspect]
     Indication: BONE MARROW TRANSPLANT
  4. MYCOPHENOLATE MOFETIL [Suspect]
     Indication: IMMUNOSUPPRESSION
     Dosage: UNK
     Route: 065
  5. MYCOPHENOLATE MOFETIL [Suspect]
     Dosage: UNK
     Route: 065
  6. CYCLOSPORINE [Suspect]
     Indication: IMMUNOSUPPRESSION
     Dosage: UNK
     Route: 065
  7. FLUCONAZOLE [Concomitant]
     Indication: INFECTION PROPHYLAXIS
     Dosage: UNK
     Route: 065
  8. IMMUNE GLOBULIN NOS [Concomitant]
     Indication: PRODUCT USED FOR UNKNOWN INDICATION
     Dosage: UNK
     Route: 042
  9. RED BLOOD CELLS, CONCENTRATED [Concomitant]
     Indication: PRODUCT USED FOR UNKNOWN INDICATION
     Dosage: UNK
     Route: 065
  10. PLATELETS [Concomitant]
     Indication: PRODUCT USED FOR UNKNOWN INDICATION
     Dosage: UNK
     Route: 065
  11. CORTICOSTEROIDS [Concomitant]
     Indication: GRAFT VERSUS HOST DISEASE
     Dosage: UNK
     Route: 065
  12. LEVOTHYROXINE [Concomitant]
     Indication: HYPOTHYROIDISM
     Dosage: UNK
     Route: 065
  13. IMMUNE GLOBULIN NOS [Concomitant]
     Dosage: UNK
     Route: 042
  14. RITUXIMAB [Concomitant]
     Indication: EPSTEIN-BARR VIRAEMIA
     Dosage: UNK
     Route: 065

REACTIONS (3)
  - ACUTE GRAFT VERSUS HOST DISEASE [None]
  - BACTERAEMIA [None]
  - PULMONARY TOXICITY [None]
